FAERS Safety Report 9285241 (Version 1)
Quarter: 2013Q2

REPORT INFORMATION
  Report Type: Spontaneous
  Country: US (occurrence: US)
  Receive Date: 20130513
  Receipt Date: 20130513
  Transmission Date: 20140414
  Serious: Yes (Other)
  Sender: FDA-Public Use
  Company Number: PHEH2013US010287

PATIENT
  Sex: Female

DRUGS (3)
  1. EXELON PATCH [Suspect]
     Dosage: 4.6 MG (PATCH 5 CM2), DAILY
     Route: 062
  2. EXELON PATCH [Suspect]
     Dosage: 9.5 MG (PATCH 10 CM2), DAILY
     Route: 062
  3. LEVODOPA [Concomitant]
     Dosage: 25 MG, UNK

REACTIONS (7)
  - Psychotic behaviour [Unknown]
  - Hallucination [Unknown]
  - Aggression [Not Recovered/Not Resolved]
  - Abnormal behaviour [Unknown]
  - Crying [Unknown]
  - Screaming [Unknown]
  - Mood altered [Unknown]
